FAERS Safety Report 6502787-0 (Version None)
Quarter: 2009Q4

REPORT INFORMATION
  Report Type: 
  Country: None (occurrence: None)
  Receive Date: 20091217
  Receipt Date: 20091215
  Transmission Date: 20100525
  Serious: Yes (Hospitalization)
  Sender: FDA-Public Use
  Company Number: US-ROXANE LABORATORIES, INC.-2009-RO-01262RO

PATIENT
  Age: 47 Year
  Sex: Female

DRUGS (13)
  1. TERBINAFINE HCL [Suspect]
     Indication: ONYCHOMYCOSIS
     Dosage: 250 MG
     Route: 048
  2. PREDNISONE [Suspect]
     Indication: RASH
     Dosage: 60 MG
     Route: 048
  3. PREDNISONE [Suspect]
     Dosage: 120 MG
     Route: 048
  4. CLOBETASOL PROPIONATE [Suspect]
     Indication: RASH
     Route: 061
  5. DIPHENHYDRAMINE HCL [Suspect]
     Indication: PRURITUS
     Route: 048
  6. METHYLPREDNISOLONE [Concomitant]
     Indication: RASH
     Dosage: 125 MG
     Route: 042
  7. ACETAMINOPHEN [Concomitant]
     Indication: PYREXIA
     Route: 048
  8. PETROLATUM-IMPREGNATED GAUZE [Concomitant]
     Indication: SUPPORTIVE CARE
  9. PANTOPRAZOLE [Concomitant]
     Indication: PROPHYLAXIS
     Dosage: 40 MG
     Route: 048
  10. CALCIUM [Concomitant]
     Indication: MINERAL SUPPLEMENTATION
     Dosage: 500 MG
  11. CALCIUM [Concomitant]
     Indication: DRUG THERAPY
  12. VITAMIN D [Concomitant]
     Indication: VITAMIN SUPPLEMENTATION
  13. VITAMIN D [Concomitant]
     Indication: DRUG THERAPY

REACTIONS (2)
  - ACUTE GENERALISED EXANTHEMATOUS PUSTULOSIS [None]
  - DISEASE PROGRESSION [None]
